FAERS Safety Report 8473475-9 (Version None)
Quarter: 2012Q2

REPORT INFORMATION
  Report Type: 
  Country: None (occurrence: None)
  Receive Date: 20120625
  Receipt Date: 20120625
  Transmission Date: 20120825
  Serious: Yes (Life-Threatening, Disabling, Other)
  Sender: FDA-Public Use
  Company Number: None

PATIENT
  Sex: Female

DRUGS (2)
  1. HUMIRA [Suspect]
     Indication: PSORIATIC ARTHROPATHY
     Dosage: EVERY OTHER WEEK SUBDERMAL
     Route: 059
     Dates: start: 20100401, end: 20120518
  2. CYMBALTA [Concomitant]

REACTIONS (2)
  - NEOPLASM MALIGNANT [None]
  - LEUKAEMIA [None]
